FAERS Safety Report 8818827 (Version 2)
Quarter: 2013Q1

REPORT INFORMATION
  Report Type: Spontaneous
  Country: DE (occurrence: DE)
  Receive Date: 20121001
  Receipt Date: 20130204
  Transmission Date: 20140127
  Serious: Yes (Other)
  Sender: FDA-Public Use
  Company Number: PHHY2012DE084794

PATIENT
  Sex: Female

DRUGS (1)
  1. EXTAVIA [Suspect]
     Indication: MULTIPLE SCLEROSIS
     Dosage: 0.5 ML, QOD
     Route: 058
     Dates: start: 20120917, end: 20120926

REACTIONS (2)
  - Cardiovascular disorder [Recovering/Resolving]
  - Swollen tongue [Recovering/Resolving]
